FAERS Safety Report 9160938 (Version 1)
Quarter: 2013Q1

REPORT INFORMATION
  Report Type: Spontaneous
  Country: GB (occurrence: None)
  Receive Date: 20130219
  Receipt Date: 20130219
  Transmission Date: 20140127
  Serious: Yes (Other)
  Sender: FDA-Public Use
  Company Number: GER/UKI/13/0027987

PATIENT
  Age: 26 Year
  Sex: Female

DRUGS (1)
  1. FLUOXETINE [Suspect]
     Indication: PRODUCT USED FOR UNKNOWN INDICATION

REACTIONS (9)
  - Drug withdrawal syndrome [None]
  - Crying [None]
  - Headache [None]
  - Dysarthria [None]
  - Panic attack [None]
  - Feeling abnormal [None]
  - Suicidal ideation [None]
  - Treatment noncompliance [None]
  - Inappropriate schedule of drug administration [None]
